FAERS Safety Report 23873219 (Version 1)
Quarter: 2024Q2

REPORT INFORMATION
  Report Type: Spontaneous
  Country: GB (occurrence: GB)
  Receive Date: 20240520
  Receipt Date: 20240520
  Transmission Date: 20240716
  Serious: Yes (Other)
  Sender: FDA-Public Use
  Company Number: GB-SANDOZ-SDZ2023GB076227

PATIENT
  Sex: Female

DRUGS (5)
  1. EVEROLIMUS [Suspect]
     Active Substance: EVEROLIMUS
     Indication: Breast cancer metastatic
     Dosage: UNK
     Route: 065
     Dates: start: 2021
  2. PALBOCICLIB [Concomitant]
     Active Substance: PALBOCICLIB
     Indication: Product used for unknown indication
     Dosage: UNK
     Route: 065
     Dates: start: 2019, end: 2021
  3. FASLODEX [Concomitant]
     Active Substance: FULVESTRANT
     Indication: Product used for unknown indication
     Dosage: UNK
     Route: 065
     Dates: start: 2019, end: 2021
  4. ZOMETA [Concomitant]
     Active Substance: ZOLEDRONIC ACID
     Indication: Product used for unknown indication
     Dosage: UNK
     Route: 065
     Dates: start: 2019, end: 2021
  5. ZOMETA [Concomitant]
     Active Substance: ZOLEDRONIC ACID
     Dosage: UNK (STARTED JAN 22, PROGRESSED JULY 23)
     Route: 065
     Dates: start: 202201, end: 202307

REACTIONS (1)
  - Breast cancer [Unknown]
